FAERS Safety Report 12269565 (Version 1)
Quarter: 2016Q2

REPORT INFORMATION
  Report Type: Report from Study
  Country: US (occurrence: US)
  Receive Date: 20160414
  Receipt Date: 20160414
  Transmission Date: 20160815
  Serious: Yes (Other)
  Sender: FDA-Public Use
  Company Number: US-BAXALTA-2016BLT001994

PATIENT
  Age: 2 Year
  Sex: Female
  Weight: 11.8 kg

DRUGS (3)
  1. ONCASPAR [Suspect]
     Active Substance: PEGASPARGASE
     Dosage: 1350 U, FOURTH DOSE PER PROTOCOL
     Route: 042
     Dates: start: 20160128, end: 20160128
  2. ONCASPAR [Suspect]
     Active Substance: PEGASPARGASE
     Indication: ACUTE LYMPHOCYTIC LEUKAEMIA
     Dosage: 1350 U, FIRST DOSE PER PROTOCOL
     Route: 042
     Dates: start: 20151001, end: 20151001
  3. RASBURICASE [Concomitant]
     Active Substance: RASBURICASE
     Indication: TUMOUR LYSIS SYNDROME
     Dosage: 2 DOSES TOTAL
     Route: 065

REACTIONS (2)
  - Diabetes mellitus [Recovered/Resolved]
  - Anaphylactic reaction [Recovered/Resolved]

NARRATIVE: CASE EVENT DATE: 20151002
